FAERS Safety Report 6043635-5 (Version None)
Quarter: 2009Q1

REPORT INFORMATION
  Report Type: 
  Country: None (occurrence: None)
  Receive Date: 20090120
  Receipt Date: 20011024
  Transmission Date: 20090719
  Serious: No
  Sender: FDA-Public Use
  Company Number: US-ABBOTT-08P-163-0469273-00

PATIENT
  Sex: Female

DRUGS (1)
  1. PROSOM [Suspect]
     Indication: RESTLESS LEGS SYNDROME
     Route: 048
     Dates: start: 19880101

REACTIONS (1)
  - DRUG INEFFECTIVE [None]
